FAERS Safety Report 6253612-7 (Version None)
Quarter: 2009Q3

REPORT INFORMATION
  Report Type: 
  Country: None (occurrence: None)
  Receive Date: 20090701
  Receipt Date: 20090623
  Transmission Date: 20100115
  Serious: Yes (Life-Threatening, Hospitalization, Other)
  Sender: FDA-Public Use
  Company Number: US-PFIZER INC-2006129741

PATIENT
  Sex: Female
  Weight: 84.8 kg

DRUGS (2)
  1. LIPITOR [Suspect]
     Route: 048
     Dates: start: 20010101, end: 20040101
  2. DIOVAN [Concomitant]
     Indication: BLOOD PRESSURE

REACTIONS (21)
  - BALANCE DISORDER [None]
  - FALL [None]
  - FLATULENCE [None]
  - HYPOAESTHESIA [None]
  - HYPOKINESIA [None]
  - ILL-DEFINED DISORDER [None]
  - INJECTION SITE ANAESTHESIA [None]
  - INSOMNIA [None]
  - LIVER DISORDER [None]
  - LOSS OF CONTROL OF LEGS [None]
  - MALAISE [None]
  - MONOPLEGIA [None]
  - MUSCLE ATROPHY [None]
  - MUSCLE SPASMS [None]
  - NEUROPATHY PERIPHERAL [None]
  - OFF LABEL USE [None]
  - PAIN IN EXTREMITY [None]
  - PERIPHERAL COLDNESS [None]
  - STAPHYLOCOCCAL INFECTION [None]
  - UNEVALUABLE EVENT [None]
  - WALKING AID USER [None]
